FAERS Safety Report 14931456 (Version 1)
Quarter: 2018Q2

REPORT INFORMATION
  Report Type: Spontaneous
  Country: US (occurrence: US)
  Receive Date: 20180524
  Receipt Date: 20180524
  Transmission Date: 20180711
  Serious: Yes (Hospitalization)
  Sender: FDA-Public Use
  Company Number: US-ASTRAZENECA-2018SE65765

PATIENT
  Sex: Female
  Weight: 56.2 kg

DRUGS (6)
  1. NITROGLYCERIN TABLET [Concomitant]
     Indication: CHEST DISCOMFORT
     Dosage: 0.4MG AS REQUIRED
     Route: 048
  2. ASPIRIN. [Concomitant]
     Active Substance: ASPIRIN
     Indication: PROPHYLAXIS
     Route: 048
  3. PLAVIX [Concomitant]
     Active Substance: CLOPIDOGREL BISULFATE
  4. ATORVASTATIN [Concomitant]
     Active Substance: ATORVASTATIN
     Indication: PROPHYLAXIS
     Route: 048
     Dates: start: 20171106
  5. FISH OIL [Concomitant]
     Active Substance: FISH OIL
     Route: 048
  6. BRILINTA [Suspect]
     Active Substance: TICAGRELOR
     Indication: MYOCARDIAL INFARCTION
     Route: 048
     Dates: start: 20171106

REACTIONS (10)
  - Dyspnoea [Recovered/Resolved]
  - Palpitations [Recovered/Resolved]
  - Malaise [Recovered/Resolved]
  - Breast disorder [Unknown]
  - Chest discomfort [Recovered/Resolved]
  - Breast discomfort [Recovered/Resolved]
  - Body height decreased [Unknown]
  - Speech disorder [Unknown]
  - Ear disorder [Unknown]
  - Dizziness [Recovered/Resolved]
